FAERS Safety Report 6016166-6 (Version None)
Quarter: 2008Q4

REPORT INFORMATION
  Report Type: 
  Country: None (occurrence: None)
  Receive Date: 20081222
  Receipt Date: 20081215
  Transmission Date: 20090506
  Serious: Yes (Congenital Anomaly)
  Sender: FDA-Public Use
  Company Number: GB-ELI_LILLY_AND_COMPANY-GB200812003666

PATIENT

DRUGS (3)
  1. FLUOXETINE [Suspect]
     Indication: POST VIRAL FATIGUE SYNDROME
     Dosage: 40 MG, UNK
     Route: 064
  2. CEFALEXIN [Concomitant]
     Indication: URINARY TRACT INFECTION
     Dosage: 250 MG, UNK
     Route: 064
  3. GAVISCON /00237601/ [Concomitant]
     Dosage: UNK, UNK
     Route: 064
     Dates: start: 20080714

REACTIONS (3)
  - AGITATION NEONATAL [None]
  - DRUG EXPOSURE DURING PREGNANCY [None]
  - TALIPES [None]
